FAERS Safety Report 20809395 (Version 2)
Quarter: 2022Q4

REPORT INFORMATION
  Report Type: Spontaneous
  Country: US (occurrence: US)
  Receive Date: 20220510
  Receipt Date: 20221019
  Transmission Date: 20230113
  Serious: Yes (Life-Threatening, Other)
  Sender: FDA-Public Use
  Company Number: US-PFIZER INC-202200662068

PATIENT
  Age: 8 Year
  Sex: Male

DRUGS (20)
  1. METHOTREXATE SODIUM [Suspect]
     Active Substance: METHOTREXATE SODIUM
     Indication: Burkitt^s lymphoma
     Dosage: 15 MG 7 DOSES
     Route: 037
  2. METHOTREXATE SODIUM [Suspect]
     Active Substance: METHOTREXATE SODIUM
     Indication: Prophylaxis
     Dosage: 3000 MG/M2, CYCLIC (HIGH DOSEX 1)R-COPADM1,2
     Route: 042
  3. METHOTREXATE SODIUM [Suspect]
     Active Substance: METHOTREXATE SODIUM
     Dosage: 3000 MG/M2, CYCLIC (OVER 3 H(R-CYM1,2)
     Route: 042
  4. HYDROCORTISONE SODIUM SUCCINATE [Suspect]
     Active Substance: HYDROCORTISONE SODIUM SUCCINATE
     Indication: Burkitt^s lymphoma
     Dosage: 15 MG FOR 9 DOSES
     Route: 037
  5. HYDROCORTISONE SODIUM SUCCINATE [Suspect]
     Active Substance: HYDROCORTISONE SODIUM SUCCINATE
     Indication: Prophylaxis
  6. CYTARABINE [Suspect]
     Active Substance: CYTARABINE
     Indication: Burkitt^s lymphoma
     Dosage: 30 MG FOR 2 DOSES
     Route: 037
  7. CYTARABINE [Suspect]
     Active Substance: CYTARABINE
     Indication: Prophylaxis
     Dosage: 100 MG/M2, DAILY (5D CONTINUOUS INFUSION(R-CYM1,2 )
     Route: 042
  8. VINCRISTINE SULFATE [Suspect]
     Active Substance: VINCRISTINE SULFATE
     Indication: Burkitt^s lymphoma
     Dosage: 1 MG/M2, CYCLIC (X1, MAX PER DOSE:2 MG(R-COP 1,2)
     Route: 042
  9. VINCRISTINE SULFATE [Suspect]
     Active Substance: VINCRISTINE SULFATE
     Dosage: 2 MG/M2, CYCLIC (X1(R-COPADM1,2)
     Route: 042
  10. DOXORUBICIN HYDROCHLORIDE [Suspect]
     Active Substance: DOXORUBICIN HYDROCHLORIDE
     Indication: Burkitt^s lymphoma
     Dosage: 60 MG/M2, CYCLIC (X1(R-COPADM1,2 )
  11. RITUXIMAB [Suspect]
     Active Substance: RITUXIMAB
     Indication: Burkitt^s lymphoma
     Dosage: 375 MG/M2, CYCLIC (X1(R-COP 1,2 )
     Route: 042
  12. RITUXIMAB [Suspect]
     Active Substance: RITUXIMAB
     Dosage: 375 MG/M2, CYCLIC (X1(R-COPADM1,2 )
     Route: 042
  13. RITUXIMAB [Suspect]
     Active Substance: RITUXIMAB
     Dosage: 375 MG/M2, CYCLIC (X1(R-CYM1,2)
     Route: 042
  14. CYCLOPHOSPHAMIDE [Suspect]
     Active Substance: CYCLOPHOSPHAMIDE
     Indication: Burkitt^s lymphoma
     Dosage: 250 MG, CYCLIC (X1(R-COP 1,2)
     Route: 042
  15. CYCLOPHOSPHAMIDE [Suspect]
     Active Substance: CYCLOPHOSPHAMIDE
     Dosage: 250 MG/M2, CYCLIC (Q 12 HX6 (R-COPADM1,2)
     Route: 042
  16. PREDNISONE [Suspect]
     Active Substance: PREDNISONE
     Indication: Burkitt^s lymphoma
     Dosage: 60 MG/M2, DAILY (FOR 7 DAY(R-COP 1,2)
     Route: 048
  17. PREDNISONE [Suspect]
     Active Substance: PREDNISONE
     Dosage: 60 MG/M2, DAILY (FOR 5 D(R-COPADM1,2)
     Route: 048
  18. DEXRAZOXANE [Concomitant]
     Active Substance: DEXRAZOXANE
     Dosage: UNK
  19. TACROLIMUS [Concomitant]
     Active Substance: TACROLIMUS
     Indication: Immunosuppression
     Dosage: UNK (LOW DOSE WAS RESTARTED)
  20. EVEROLIMUS HCS [Concomitant]
     Indication: Immunosuppression
     Dosage: UNK (WITH IN 1 MONTH OF CHEMOTHERAPY COMPLETION)

REACTIONS (2)
  - Febrile neutropenia [Unknown]
  - Mucosal inflammation [Unknown]
